FAERS Safety Report 7731033-5 (Version None)
Quarter: 2011Q3

REPORT INFORMATION
  Report Type: 
  Country: None (occurrence: None)
  Receive Date: 20110906
  Receipt Date: 20110906
  Transmission Date: 20111222
  Serious: Yes (Death, Life-Threatening, Hospitalization, Disabling, Congenital Anomaly, Other)
  Sender: FDA-Public Use
  Company Number: None

PATIENT
  Age: 3 Year
  Sex: Female
  Weight: 58.967 kg

DRUGS (3)
  1. RIBAVIRIN [Concomitant]
     Indication: ARTHRALGIA
  2. RIBAVIRIN [Concomitant]
     Indication: MAMMOPLASTY
  3. INTERFERON [Suspect]
     Indication: HEPATITIS C
     Dates: start: 20061120, end: 20070420

REACTIONS (22)
  - SEROMA [None]
  - POST PROCEDURAL INFECTION [None]
  - CHEST PAIN [None]
  - MAJOR DEPRESSION [None]
  - FIBROMYALGIA [None]
  - FEAR [None]
  - BREAST HAEMATOMA [None]
  - INCORRECT DOSE ADMINISTERED [None]
  - INSOMNIA [None]
  - TOOTH DISORDER [None]
  - POST PROCEDURAL HAEMATOMA [None]
  - PAIN [None]
  - MAMMOPLASTY [None]
  - MOVEMENT DISORDER [None]
  - DEVICE FAILURE [None]
  - SPINAL OSTEOARTHRITIS [None]
  - BREAST PROSTHESIS IMPLANTATION [None]
  - PATHOGEN RESISTANCE [None]
  - STAPHYLOCOCCAL INFECTION [None]
  - AUTOIMMUNE DISORDER [None]
  - ARTHRALGIA [None]
  - BREAST INFECTION [None]
